FAERS Safety Report 12215983 (Version 2)
Quarter: 2016Q1

REPORT INFORMATION
  Report Type: Spontaneous
  Country: US (occurrence: US)
  Receive Date: 20160328
  Receipt Date: 20160328
  Transmission Date: 20160526
  Serious: No
  Sender: FDA-Public Use
  Company Number: US-LUPIN PHARMACEUTICALS INC.-2016-00849

PATIENT
  Age: 69 Year
  Sex: Male

DRUGS (1)
  1. ESZOPICLONE TABLETS 3 MG [Suspect]
     Active Substance: ESZOPICLONE
     Indication: SLEEP DISORDER
     Dosage: 3MG
     Route: 048
     Dates: start: 20160220, end: 20160221

REACTIONS (3)
  - Sleep disorder [Unknown]
  - Drug ineffective [Unknown]
  - Central nervous system stimulation [Unknown]

NARRATIVE: CASE EVENT DATE: 20160220
